FAERS Safety Report 4825130-1 (Version None)
Quarter: 2005Q4

REPORT INFORMATION
  Report Type: 
  Country: None (occurrence: None)
  Receive Date: 20051109
  Receipt Date: 20051109
  Transmission Date: 20060501
  Serious: Yes (Hospitalization)
  Sender: FDA-Public Use
  Company Number: None

PATIENT
  Age: 74 Year
  Sex: Male
  Weight: 90 kg

DRUGS (1)
  1. HEPARIN [Suspect]
     Indication: CORONARY ARTERY SURGERY

REACTIONS (1)
  - HEPARIN-INDUCED THROMBOCYTOPENIA [None]
